FAERS Safety Report 5060310-4 (Version None)
Quarter: 2006Q3

REPORT INFORMATION
  Report Type: 
  Country: None (occurrence: None)
  Receive Date: 20060720
  Receipt Date: 20060707
  Transmission Date: 20061208
  Serious: Yes (Other)
  Sender: FDA-Public Use
  Company Number: 2006-145162-NL

PATIENT
  Age: 34 Year
  Sex: Female
  Weight: 59 kg

DRUGS (3)
  1. NUVARING [Suspect]
     Indication: MENSTRUAL DISORDER
     Dosage: VAGINAL, 21 DAYS IN 7 DAYS OUT USED FOR TWO CYCLES
     Dates: start: 20060401, end: 20060528
  2. IBUPROFEN [Concomitant]
  3. ASPIRIN [Concomitant]

REACTIONS (11)
  - BLOOD PRESSURE INCREASED [None]
  - CONTUSION [None]
  - DEPRESSION [None]
  - FLANK PAIN [None]
  - FOOD CRAVING [None]
  - HEART RATE INCREASED [None]
  - METAL POISONING [None]
  - OEDEMA PERIPHERAL [None]
  - PARAESTHESIA [None]
  - RAYNAUD'S PHENOMENON [None]
  - SENSATION OF PRESSURE [None]
